FAERS Safety Report 14137148 (Version 1)
Quarter: 2017Q4

REPORT INFORMATION
  Report Type: Spontaneous
  Country: IT (occurrence: IT)
  Receive Date: 20171027
  Receipt Date: 20171027
  Transmission Date: 20180321
  Serious: Yes (Hospitalization)
  Sender: FDA-Public Use
  Company Number: PHHY2017IT158336

PATIENT
  Age: 71 Year
  Sex: Female

DRUGS (2)
  1. CLAVULANIC ACID [Suspect]
     Active Substance: CLAVULANIC ACID
     Indication: PRODUCT USED FOR UNKNOWN INDICATION
     Dosage: 1 G, TOTAL
     Route: 048
     Dates: start: 20171006, end: 20171006
  2. AMOXICILLIN. [Suspect]
     Active Substance: AMOXICILLIN
     Indication: PRODUCT USED FOR UNKNOWN INDICATION
     Dosage: 1 G, TOTAL
     Route: 048
     Dates: start: 20101006, end: 20101006

REACTIONS (5)
  - Hyperhidrosis [Recovering/Resolving]
  - Loss of consciousness [Recovering/Resolving]
  - Chest pain [Recovering/Resolving]
  - Vomiting [Recovering/Resolving]
  - Pruritus [Recovering/Resolving]

NARRATIVE: CASE EVENT DATE: 20101006
